FAERS Safety Report 4346892-6 (Version None)
Quarter: 2004Q1

REPORT INFORMATION
  Report Type: 
  Country: None (occurrence: None)
  Receive Date: 20040329
  Receipt Date: 20031222
  Transmission Date: 20041129
  Serious: No
  Sender: FDA-Public Use
  Company Number: USA031255210

PATIENT
  Age: 35 Year
  Sex: Male

DRUGS (3)
  1. STRATTERA [Suspect]
     Indication: ATTENTION DEFICIT/HYPERACTIVITY DISORDER
     Dosage: 40 MG/DAY
     Dates: start: 20031201, end: 20031219
  2. LITHOBID [Concomitant]
  3. MELLARIL [Concomitant]

REACTIONS (1)
  - AGITATION [None]
